FAERS Safety Report 4885201-0 (Version None)
Quarter: 2006Q1

REPORT INFORMATION
  Report Type: 
  Country: None (occurrence: None)
  Receive Date: 20060119
  Receipt Date: 20051219
  Transmission Date: 20060701
  Serious: Yes (Hospitalization)
  Sender: FDA-Public Use
  Company Number: DEWYE245119DEC05

PATIENT
  Sex: Male
  Weight: 90 kg

DRUGS (2)
  1. ENBREL [Suspect]
     Indication: PSORIASIS
     Route: 058
     Dates: start: 20050714, end: 20050801
  2. ENBREL [Suspect]
     Route: 058
     Dates: start: 20050606, end: 20050713

REACTIONS (7)
  - CONDITION AGGRAVATED [None]
  - DISEASE PROGRESSION [None]
  - GRANULOMA [None]
  - LIPOMA [None]
  - NODULE [None]
  - SARCOIDOSIS [None]
  - TUBERCULOSIS [None]
